FAERS Safety Report 24053958 (Version 1)
Quarter: 2024Q3

REPORT INFORMATION
  Report Type: Spontaneous
  Country: ES (occurrence: ES)
  Receive Date: 20240705
  Receipt Date: 20240705
  Transmission Date: 20241016
  Serious: Yes (Hospitalization, Other)
  Sender: BRISTOL MYERS SQUIBB
  Company Number: ES-BRISTOL-MYERS SQUIBB COMPANY-2024-105430

PATIENT
  Age: 60 Year

DRUGS (2)
  1. NIVOLUMAB [Suspect]
     Active Substance: NIVOLUMAB
     Indication: Product used for unknown indication
     Dates: start: 2023
  2. IPILIMUMAB [Suspect]
     Active Substance: IPILIMUMAB
     Indication: Product used for unknown indication
     Dates: start: 2023

REACTIONS (10)
  - Pneumonia [Unknown]
  - Asthenia [Unknown]
  - Arthralgia [Unknown]
  - Rash [Unknown]
  - Dyspnoea exertional [Unknown]
  - Productive cough [Unknown]
  - Pyrexia [Unknown]
  - Chest pain [Unknown]
  - Pneumonia pseudomonal [Unknown]
  - Neoplasm [Unknown]

NARRATIVE: CASE EVENT DATE: 20230701
